FAERS Safety Report 16562511 (Version 3)
Quarter: 2019Q3

REPORT INFORMATION
  Report Type: Spontaneous
  Country: ES (occurrence: ES)
  Receive Date: 20190711
  Receipt Date: 20190909
  Transmission Date: 20191004
  Serious: Yes (Death, Hospitalization)
  Sender: FDA-Public Use
  Company Number: ES-ABBVIE-19K-144-2846681-00

PATIENT
  Age: 72 Year
  Sex: Male

DRUGS (9)
  1. GLIMEPIRIDE. [Concomitant]
     Active Substance: GLIMEPIRIDE
     Indication: PRODUCT USED FOR UNKNOWN INDICATION
  2. VENETOCLAX. [Suspect]
     Active Substance: VENETOCLAX
     Route: 048
     Dates: start: 20190506
  3. DECITABINA [Suspect]
     Active Substance: DECITABINE
     Route: 065
     Dates: start: 20190506
  4. OMEPRAZOLE. [Concomitant]
     Active Substance: OMEPRAZOLE
     Indication: PRODUCT USED FOR UNKNOWN INDICATION
  5. VENETOCLAX. [Suspect]
     Active Substance: VENETOCLAX
     Indication: ACUTE MYELOID LEUKAEMIA
     Route: 048
     Dates: start: 20190404, end: 2019
  6. DECITABINA [Suspect]
     Active Substance: DECITABINE
     Indication: ACUTE MYELOID LEUKAEMIA
     Route: 065
     Dates: start: 20190404, end: 2019
  7. BISOPROLOL [Concomitant]
     Active Substance: BISOPROLOL
     Indication: PRODUCT USED FOR UNKNOWN INDICATION
  8. METFORMIN [Concomitant]
     Active Substance: METFORMIN HYDROCHLORIDE
     Indication: PRODUCT USED FOR UNKNOWN INDICATION
  9. LORAZEPAM. [Concomitant]
     Active Substance: LORAZEPAM
     Indication: PRODUCT USED FOR UNKNOWN INDICATION

REACTIONS (14)
  - Nervous system disorder [Unknown]
  - Escherichia bacteraemia [Unknown]
  - Febrile neutropenia [Unknown]
  - Tachycardia [Unknown]
  - Vomiting [Unknown]
  - Product use in unapproved indication [Unknown]
  - Intra-abdominal haematoma [Recovering/Resolving]
  - Temperature regulation disorder [Unknown]
  - Gastrointestinal sounds abnormal [Unknown]
  - Tumour lysis syndrome [Recovered/Resolved]
  - Subdural haemorrhage [Fatal]
  - Asthenia [Unknown]
  - Coma [Fatal]
  - Hyperglycaemia [Unknown]

NARRATIVE: CASE EVENT DATE: 2019
